FAERS Safety Report 19808161 (Version 1)
Quarter: 2021Q3

REPORT INFORMATION
  Report Type: Spontaneous
  Country: US (occurrence: US)
  Receive Date: 20210907
  Receipt Date: 20210907
  Transmission Date: 20211014
  Serious: No
  Sender: FDA-Public Use
  Company Number: None

PATIENT
  Age: 51 Year
  Sex: Male
  Weight: 142 kg

DRUGS (1)
  1. ESCITALOPRAM [Suspect]
     Active Substance: ESCITALOPRAM OXALATE
     Indication: DEPRESSION
     Route: 048
     Dates: start: 20210429, end: 20210430

REACTIONS (6)
  - Dizziness [None]
  - Muscle twitching [None]
  - Delirium [None]
  - Vision blurred [None]
  - Confusional state [None]
  - Dehydration [None]

NARRATIVE: CASE EVENT DATE: 20210430
